FAERS Safety Report 4576029-X (Version None)
Quarter: 2005Q1

REPORT INFORMATION
  Report Type: 
  Country: None (occurrence: None)
  Receive Date: 20050204
  Receipt Date: 20041115
  Transmission Date: 20050727
  Serious: Yes (Life-Threatening)
  Sender: FDA-Public Use
  Company Number: 9359

PATIENT
  Age: 34 Year
  Sex: Female

DRUGS (5)
  1. PACLITAXEL [Suspect]
     Indication: BREAST CANCER
     Dosage: 270 MG
     Route: 042
     Dates: start: 20041109, end: 20041109
  2. GRANISETRON [Concomitant]
  3. DEXAMETHASONE [Concomitant]
  4. CETIRIZINE HCL [Concomitant]
  5. RANITIDINE [Concomitant]

REACTIONS (1)
  - ANAPHYLACTOID REACTION [None]
